FAERS Safety Report 4654342-5 (Version None)
Quarter: 2005Q2

REPORT INFORMATION
  Report Type: 
  Country: None (occurrence: None)
  Receive Date: 20050404
  Receipt Date: 20041110
  Transmission Date: 20051028
  Serious: No
  Sender: FDA-Public Use
  Company Number: USA041081403

PATIENT
  Age: 85 Year
  Sex: Male
  Weight: 75 kg

DRUGS (2)
  1. CYMBALTA [Suspect]
     Indication: POST HERPETIC NEURALGIA
     Dosage: 20 MG/1 DAY
     Dates: start: 20040926, end: 20041017
  2. ADVIL [Concomitant]

REACTIONS (4)
  - ANXIETY [None]
  - BLOOD PRESSURE INCREASED [None]
  - NAUSEA [None]
  - PAIN [None]
